FAERS Safety Report 6190149-8 (Version None)
Quarter: 2009Q2

REPORT INFORMATION
  Report Type: 
  Country: None (occurrence: None)
  Receive Date: 20090514
  Receipt Date: 20090506
  Transmission Date: 20091009
  Serious: Yes (Hospitalization, Other)
  Sender: FDA-Public Use
  Company Number: ES-ELI_LILLY_AND_COMPANY-ES200905001117

PATIENT
  Age: 94 Year
  Sex: Female

DRUGS (4)
  1. FORTEO [Suspect]
     Indication: OSTEOPOROSIS
     Dosage: 20 UG, UNK
     Dates: start: 20090301
  2. PARIET [Concomitant]
     Dosage: 20 MG, UNK
  3. GELOCATIL [Concomitant]
  4. ANTIBIOTICS [Concomitant]

REACTIONS (2)
  - BONE FISSURE [None]
  - FALL [None]
